FAERS Safety Report 21481656 (Version 1)
Quarter: 2022Q4

REPORT INFORMATION
  Report Type: Spontaneous
  Country: CN (occurrence: CN)
  Receive Date: 20221020
  Receipt Date: 20221020
  Transmission Date: 20230113
  Serious: Yes (Other)
  Sender: FDA-Public Use
  Company Number: None

PATIENT
  Age: 65 Year
  Sex: Female
  Weight: 58 kg

DRUGS (6)
  1. CYCLOPHOSPHAMIDE [Suspect]
     Active Substance: CYCLOPHOSPHAMIDE
     Indication: Chemotherapy
     Dosage: 950 MG, QD, POWDER INJECTION DILUTED  WITH NS 50ML (THIRD CHEMOTHERAPY)
     Route: 042
     Dates: start: 20220707, end: 20220707
  2. CYCLOPHOSPHAMIDE [Suspect]
     Active Substance: CYCLOPHOSPHAMIDE
     Indication: Breast cancer female
  3. SODIUM CHLORIDE [Suspect]
     Active Substance: SODIUM CHLORIDE
     Indication: Medication dilution
     Dosage: 50 ML, QD, DILUTED WITH CYCLOPHOSPHAMIDE FOR INJECTION (ENDOXAN CTX) 950 MG
     Route: 041
     Dates: start: 20220707, end: 20220707
  4. SODIUM CHLORIDE [Suspect]
     Active Substance: SODIUM CHLORIDE
     Dosage: 100 ML, QD, DILUTED WITH EPIRUBICIN HYDROCHLORIDE FOR INJECTION (PHARMORUBICIN) 134 MG
     Route: 041
     Dates: start: 20220707, end: 20220707
  5. EPIRUBICIN [Suspect]
     Active Substance: EPIRUBICIN
     Indication: Chemotherapy
     Dosage: 134 MG, QD, DILUTED WITH NS 100 ML (THIRD CHEMOTHERAPY)
     Route: 041
     Dates: start: 20220707, end: 20220707
  6. EPIRUBICIN [Suspect]
     Active Substance: EPIRUBICIN
     Indication: Breast cancer female

REACTIONS (2)
  - White blood cell count decreased [Recovered/Resolved]
  - Agranulocytosis [Recovered/Resolved]

NARRATIVE: CASE EVENT DATE: 20220721
